FAERS Safety Report 9563421 (Version 1)
Quarter: 2013Q3

REPORT INFORMATION
  Report Type: Spontaneous
  Country: ES (occurrence: None)
  Receive Date: 20130926
  Receipt Date: 20130926
  Transmission Date: 20140515
  Serious: Yes (Hospitalization, Other)
  Sender: FDA-Public Use
  Company Number: AUR-APL-2013-07893

PATIENT
  Age: 78 Year
  Sex: Female

DRUGS (10)
  1. AMLODIPINE (AMLODIPINE) [Suspect]
     Indication: HYPERTENSION
     Dosage: (20 MG, 1 D) , ORAL
     Route: 048
     Dates: start: 2007, end: 20130117
  2. IRBESARTAN (IRBESARTAN) [Suspect]
     Indication: HYPERTENSION
     Dosage: 300 MG, 1 D) , ORAL
     Route: 048
     Dates: start: 201201, end: 20130117
  3. AMERIDE [Suspect]
     Indication: HYPERTENSION
     Route: 048
     Dates: start: 2007, end: 20130117
  4. VACCINIUM MACROCARPON FRUIT JUICE [Suspect]
     Indication: PRODUCT USED FOR UNKNOWN INDICATION
     Dosage: (1 DOSAGE FORMS, 1 D) , ORAL
     Route: 048
     Dates: start: 20130102, end: 20130117
  5. TENORMIN (ATENOLOL) [Suspect]
     Indication: ATRIAL FIBRILLATION
     Route: 048
     Dates: start: 201201, end: 20130117
  6. CLOPIDOGREL (CLOPIDOGREL) [Concomitant]
  7. ATORVASTATIN (ATORVASTATIN) [Concomitant]
  8. METFORMIN (METFORMIN) [Concomitant]
  9. DEXKETOPROFEN (DEXKETOPROFEN) [Concomitant]
  10. PARACETAMOL (PARACETAMOL) [Concomitant]

REACTIONS (14)
  - Renal failure acute [None]
  - Ejection fraction decreased [None]
  - Ventricular hypokinesia [None]
  - Mitral valve incompetence [None]
  - Tricuspid valve incompetence [None]
  - Type 2 diabetes mellitus [None]
  - Atrial fibrillation [None]
  - Dyslipidaemia [None]
  - Hypertension [None]
  - Pain [None]
  - Renal cyst [None]
  - Cholelithiasis [None]
  - Drug effect incomplete [None]
  - Drug interaction [None]
